FAERS Safety Report 18432234 (Version 2)
Quarter: 2020Q4

REPORT INFORMATION
  Report Type: Report from Study
  Country: CN (occurrence: CN)
  Receive Date: 20201027
  Receipt Date: 20201106
  Transmission Date: 20210114
  Serious: Yes (Hospitalization)
  Sender: FDA-Public Use
  Company Number: CN-TAKEDA-2020TJP022545

PATIENT
  Age: 51 Year
  Sex: Male
  Weight: 68 kg

DRUGS (6)
  1. ASPIRIN [ACETYLSALICYLIC ACID] [Concomitant]
     Active Substance: ASPIRIN
     Indication: PROPHYLAXIS
     Dosage: 100 MILLIGRAM, QD
     Route: 048
     Dates: start: 20200616, end: 20201011
  2. INSULIN [Concomitant]
     Active Substance: INSULIN NOS
     Dosage: 4 INTERNATIONAL UNIT, QD
     Route: 051
     Dates: start: 20201016, end: 20201028
  3. ILAPRAZOLE [Concomitant]
     Active Substance: ILAPRAZOLE
     Indication: ENZYME INHIBITION
     Dosage: 10 MILLIGRAM, QD
     Route: 051
     Dates: start: 20201016, end: 20201028
  4. INSULIN [Concomitant]
     Active Substance: INSULIN NOS
     Dosage: 2 INTERNATIONAL UNIT, BID
     Route: 051
     Dates: start: 20201016, end: 20201028
  5. INSULIN [Concomitant]
     Active Substance: INSULIN NOS
     Indication: BLOOD GLUCOSE ABNORMAL
     Dosage: 2 INTERNATIONAL UNIT, QD
     Route: 051
     Dates: start: 20201016, end: 20201028
  6. ALOGLIPTIN. [Suspect]
     Active Substance: ALOGLIPTIN
     Indication: PRODUCT USED FOR UNKNOWN INDICATION
     Dosage: UNK
     Route: 048

REACTIONS (1)
  - Hepatic function abnormal [Recovering/Resolving]

NARRATIVE: CASE EVENT DATE: 20201016
